FAERS Safety Report 8155678-6 (Version None)
Quarter: 2012Q1

REPORT INFORMATION
  Report Type: 
  Country: None (occurrence: None)
  Receive Date: 20120222
  Receipt Date: 20120216
  Transmission Date: 20120608
  Serious: No
  Sender: FDA-Public Use
  Company Number: US-PFIZER INC-2012042678

PATIENT
  Sex: Female
  Weight: 79.365 kg

DRUGS (4)
  1. PRISTIQ [Concomitant]
     Indication: DEPRESSION
     Dosage: UNK
  2. ALPRAZOLAM [Suspect]
     Dosage: 2 MG, 3X/DAY
     Route: 048
     Dates: start: 20111001, end: 20111001
  3. ALPRAZOLAM [Suspect]
     Indication: PANIC ATTACK
     Dosage: 2 MG, 3X/DAY
     Route: 048
     Dates: end: 20111001
  4. PRISTIQ [Concomitant]
     Indication: MENTAL DISORDER

REACTIONS (3)
  - RASH [None]
  - SKIN EXFOLIATION [None]
  - ABNORMAL BEHAVIOUR [None]
